FAERS Safety Report 4737393-1 (Version None)
Quarter: 2005Q3

REPORT INFORMATION
  Report Type: 
  Country: None (occurrence: None)
  Receive Date: 20050802
  Receipt Date: 20041228
  Transmission Date: 20060218
  Serious: Yes (Hospitalization)
  Sender: FDA-Public Use
  Company Number: 216369

PATIENT
  Age: 58 Year
  Weight: 80 kg

DRUGS (4)
  1. HERCEPTIN [Suspect]
     Indication: BREAST CANCER METASTATIC
     Dosage: SEE IMAGE, INTRAVENOUS
     Route: 042
     Dates: start: 20041213, end: 20041213
  2. DOCETAXEL (DOCETAXEL) [Suspect]
     Indication: BREAST CANCER METASTATIC
     Dosage: 180 MG, Q3W, INTRAVENOUS
     Route: 042
     Dates: start: 20041214
  3. OMEPRAZOLE [Concomitant]
  4. ATENOLOL [Concomitant]

REACTIONS (3)
  - FEBRILE NEUTROPENIA [None]
  - PHARYNGITIS [None]
  - UPPER RESPIRATORY TRACT INFECTION [None]
